FAERS Safety Report 7227152-2 (Version None)
Quarter: 2011Q1

REPORT INFORMATION
  Report Type: 
  Country: None (occurrence: None)
  Receive Date: 20110114
  Receipt Date: 20110107
  Transmission Date: 20110831
  Serious: Yes (Other)
  Sender: FDA-Public Use
  Company Number: US-B.I. PHARMACEUTICALS,INC./RIDGEFIELD-2011-BP-00608BP

PATIENT
  Sex: Male

DRUGS (6)
  1. SPIRIVA [Suspect]
     Indication: CHRONIC OBSTRUCTIVE PULMONARY DISEASE
     Dates: start: 20080101
  2. PRADAXA [Suspect]
     Indication: ATRIAL FIBRILLATION
     Dates: start: 20100105, end: 20100106
  3. SINGULAIR [Concomitant]
     Indication: CHRONIC OBSTRUCTIVE PULMONARY DISEASE
  4. LEVOXYL [Concomitant]
     Indication: THYROID DISORDER
  5. SIMVASTATIN [Concomitant]
     Indication: PROPHYLAXIS
  6. DILTIAZEM [Concomitant]
     Indication: ATRIAL FIBRILLATION

REACTIONS (2)
  - BLOOD URINE PRESENT [None]
  - BLADDER CANCER [None]
